FAERS Safety Report 24721714 (Version 1)
Quarter: 2024Q4

REPORT INFORMATION
  Report Type: Spontaneous
  Country: CN (occurrence: CN)
  Receive Date: 20241211
  Receipt Date: 20241211
  Transmission Date: 20250114
  Serious: Yes (Other)
  Sender: ABBVIE
  Company Number: CN-PFIZER INC-PV202400157171

PATIENT
  Age: 60 Year
  Sex: Female
  Weight: 61.1 kg

DRUGS (4)
  1. AVIBACTAM SODIUM\CEFTAZIDIME [Suspect]
     Active Substance: AVIBACTAM SODIUM\CEFTAZIDIME
     Indication: Infection
     Dosage: TIME INTERVAL: 0.33333333 DAYS: 1.250 G, 3X/DAY
     Route: 041
     Dates: start: 20241106, end: 20241113
  2. AZTREONAM [Suspect]
     Active Substance: AZTREONAM
     Indication: Infection
     Dosage: 2.000 G, 2X/DAY
     Route: 041
     Dates: start: 20241106, end: 20241113
  3. SODIUM CHLORIDE [Concomitant]
     Active Substance: SODIUM CHLORIDE
     Indication: Product used for unknown indication
     Dosage: 50 ML, 2X/DAY
     Route: 041
     Dates: start: 20241106, end: 20241113
  4. SODIUM CHLORIDE [Concomitant]
     Active Substance: SODIUM CHLORIDE
     Indication: Product used for unknown indication
     Dosage: TIME INTERVAL: 0.33333333 DAYS: 50 ML, 3X/DAY
     Route: 041
     Dates: start: 20241106, end: 20241113

REACTIONS (3)
  - Rash erythematous [Recovered/Resolved]
  - Vomiting [Recovered/Resolved]
  - Nausea [Recovered/Resolved]

NARRATIVE: CASE EVENT DATE: 20241107
